FAERS Safety Report 18312534 (Version 2)
Quarter: 2020Q3

REPORT INFORMATION
  Report Type: Spontaneous
  Country: IT (occurrence: IT)
  Receive Date: 20200925
  Receipt Date: 20200929
  Transmission Date: 20201103
  Serious: Yes (Hospitalization)
  Sender: FDA-Public Use
  Company Number: IT-TEVA-2020-IT-1830263

PATIENT
  Age: 74 Year
  Sex: Male

DRUGS (5)
  1. ACETYLSALICYLIC ACID [Suspect]
     Active Substance: ASPIRIN
     Indication: THROMBOSIS PROPHYLAXIS
     Dosage: UNIT DOSE 100MG
     Route: 048
     Dates: start: 20191217, end: 20200827
  2. CLOPIDOGREL [Suspect]
     Active Substance: CLOPIDOGREL BISULFATE
     Indication: THROMBOSIS PROPHYLAXIS
     Dosage: UNIT DOSE 75MG
     Route: 048
     Dates: start: 20191217, end: 20200820
  3. BISOPROLOL [Concomitant]
     Active Substance: BISOPROLOL
     Dosage: UNIT DOSE 2.5MG
     Route: 048
  4. PANTOPRAZOLE [Concomitant]
     Active Substance: PANTOPRAZOLE
     Dosage: UNIT DOSE 20MG
     Route: 048
  5. CRESTOR [Concomitant]
     Active Substance: ROSUVASTATIN CALCIUM
     Indication: DYSLIPIDAEMIA
     Dosage: UNIT DOSE 5MG
     Route: 048

REACTIONS (4)
  - Haematochezia [Recovered/Resolved]
  - Rectal haemorrhage [Recovered/Resolved]
  - Haemorrhage [Recovered/Resolved]
  - Iron deficiency anaemia [Recovered/Resolved]

NARRATIVE: CASE EVENT DATE: 20200820
